FAERS Safety Report 10703730 (Version 1)
Quarter: 2015Q1

REPORT INFORMATION
  Report Type: Spontaneous
  Country: ES (occurrence: ES)
  Receive Date: 20150112
  Receipt Date: 20150112
  Transmission Date: 20150721
  Serious: Yes (Other)
  Sender: FDA-Public Use
  Company Number: ES-TEVA-533634ISR

PATIENT
  Age: 80 Year
  Sex: Male

DRUGS (4)
  1. QUETIAPINE [Suspect]
     Active Substance: QUETIAPINE
     Route: 065
  2. ASPIRIN. [Concomitant]
     Active Substance: ASPIRIN
     Route: 065
  3. WARFARIN [Concomitant]
     Active Substance: WARFARIN
     Route: 065
  4. DRONEDARONE [Interacting]
     Active Substance: DRONEDARONE
     Indication: ATRIAL FIBRILLATION
     Route: 065

REACTIONS (5)
  - Drug interaction [Recovering/Resolving]
  - Ventricular fibrillation [Recovering/Resolving]
  - Electrocardiogram QT prolonged [Recovering/Resolving]
  - Haematuria [Recovering/Resolving]
  - Hypertension [Recovering/Resolving]
